FAERS Safety Report 17362134 (Version 1)
Quarter: 2020Q1

REPORT INFORMATION
  Report Type: Spontaneous
  Country: DE (occurrence: DE)
  Receive Date: 20200203
  Receipt Date: 20200203
  Transmission Date: 20200409
  Serious: Yes (Hospitalization, Other)
  Sender: FDA-Public Use
  Company Number: DE-PFIZER INC-2020038718

PATIENT
  Age: 75 Year
  Sex: Female
  Weight: 130 kg

DRUGS (3)
  1. PALBOCICLIB [Suspect]
     Active Substance: PALBOCICLIB
     Dosage: 100 MG, UNK
     Dates: start: 201801, end: 201912
  2. PALBOCICLIB [Suspect]
     Active Substance: PALBOCICLIB
     Dosage: 125 MG, UNK
     Dates: start: 201711
  3. FULVESTRANT. [Suspect]
     Active Substance: FULVESTRANT
     Dosage: UNK
     Dates: start: 201711, end: 201912

REACTIONS (11)
  - Nausea [Unknown]
  - General physical health deterioration [Unknown]
  - Dyspnoea exertional [Unknown]
  - Fall [Unknown]
  - Neutropenia [Unknown]
  - Arthralgia [Unknown]
  - Confusional state [Unknown]
  - Vomiting [Unknown]
  - Visual impairment [Unknown]
  - Pyrexia [Unknown]
  - Neoplasm progression [Unknown]

NARRATIVE: CASE EVENT DATE: 201712
